FAERS Safety Report 14985960 (Version 1)
Quarter: 2018Q2

REPORT INFORMATION
  Report Type: Spontaneous
  Country: US (occurrence: US)
  Receive Date: 20180607
  Receipt Date: 20180607
  Transmission Date: 20180711
  Serious: Yes (Hospitalization)
  Sender: FDA-Public Use
  Company Number: US-MYLANLABS-2018M1038219

PATIENT
  Age: 68 Year
  Sex: Male

DRUGS (5)
  1. DOXYCYCLINE. [Concomitant]
     Active Substance: DOXYCYCLINE
     Indication: PEMPHIGOID
     Route: 048
  2. APIXABAN [Concomitant]
     Active Substance: APIXABAN
     Indication: DEEP VEIN THROMBOSIS
     Route: 065
  3. IBRUTINIB [Suspect]
     Active Substance: IBRUTINIB
     Indication: CHRONIC LYMPHOCYTIC LEUKAEMIA
     Dosage: 420 MG, QD
     Route: 048
     Dates: start: 2014
  4. PREDNISONE. [Suspect]
     Active Substance: PREDNISONE
     Indication: PEMPHIGOID
     Route: 048
  5. PREDNISONE. [Suspect]
     Active Substance: PREDNISONE
     Dosage: DOSE REDUCED
     Route: 048

REACTIONS (4)
  - Mucormycosis [Recovering/Resolving]
  - Atrial fibrillation [Recovering/Resolving]
  - Sepsis [Recovering/Resolving]
  - Hypotension [Recovering/Resolving]
